FAERS Safety Report 13440909 (Version 1)
Quarter: 2017Q2

REPORT INFORMATION
  Report Type: Spontaneous
  Country: SE (occurrence: SE)
  Receive Date: 20170413
  Receipt Date: 20170413
  Transmission Date: 20170830
  Serious: Yes (Hospitalization)
  Sender: FDA-Public Use
  Company Number: US-ASTRAZENECA-2017SE38605

PATIENT
  Age: 74 Year
  Sex: Female

DRUGS (10)
  1. CANDESARTAN. [Suspect]
     Active Substance: CANDESARTAN
     Indication: PRODUCT USED FOR UNKNOWN INDICATION
     Dosage: 4 MG TABLET 14 MG (3.5 TABLET)
     Route: 048
     Dates: start: 20150629, end: 20150629
  2. KALEORID [Suspect]
     Active Substance: POTASSIUM CHLORIDE
     Indication: HYPOKALAEMIA
     Dosage: 750 MG PROLONGED-RELEASE TABLET (POTASSIUM CHLORIDE) 10500 MG (14 TABLETS) AS A SINGLE DOSE
     Route: 065
     Dates: start: 20150629, end: 20150629
  3. WARAN [Concomitant]
     Active Substance: WARFARIN SODIUM
     Dosage: UNKNOWN
  4. FURIX [Suspect]
     Active Substance: FUROSEMIDE
     Dosage: 40 MG TABLET  280 MG (SEVEN TABLETS) AS A SINGLE DOSE
     Route: 065
     Dates: start: 20150629, end: 20150629
  5. PRIMPERAN [Concomitant]
     Active Substance: METOCLOPRAMIDE HYDROCHLORIDE
     Dosage: UNK
  6. IMOVANE [Concomitant]
     Active Substance: ZOPICLONE
     Dosage: UNK
  7. BISOPROLOL FUMARATE. [Suspect]
     Active Substance: BISOPROLOL FUMARATE
     Indication: ARRHYTHMIA
     Dosage: 2.5 MG TABLET (BISOPROLOL FUMARATE) 35 MG (14 TABLETS) AS A SINGLE DOSE
     Route: 065
     Dates: start: 20150629, end: 20150629
  8. DUROFERON [Suspect]
     Active Substance: FERROUS SULFATE
     Dosage: 100 MG (FERROUS SULFATE HEPTAHYDRATE) 700 MG (SEVEN TABLETS) AS A SINGLE DOSE
     Route: 065
     Dates: start: 20150629, end: 20150629
  9. CORDARONE [Suspect]
     Active Substance: AMIODARONE HYDROCHLORIDE
     Indication: ATRIAL FIBRILLATION
     Dosage: 200 MG TABLET (AMIODARONE HYDROCHLORIDE) 1400 MG (SEVEN TABLETS) AS A SINGLE DOSE
     Route: 065
     Dates: start: 20150629, end: 20150629
  10. LETROZOLE. [Suspect]
     Active Substance: LETROZOLE
     Dosage: 2.5 MG TABLET (BRAND NOT SPECIFIED) 17.5 MG (SEVEN TABLET
     Route: 048
     Dates: start: 20150629, end: 20150629

REACTIONS (3)
  - Hyperkalaemia [Recovered/Resolved]
  - Accidental overdose [Unknown]
  - Medication error [Unknown]

NARRATIVE: CASE EVENT DATE: 20150629
